FAERS Safety Report 18482167 (Version 3)
Quarter: 2021Q1

REPORT INFORMATION
  Report Type: Spontaneous
  Country: US (occurrence: US)
  Receive Date: 20201110
  Receipt Date: 20210219
  Transmission Date: 20210419
  Serious: Yes (Other)
  Sender: FDA-Public Use
  Company Number: US-BRISTOL-MYERS SQUIBB COMPANY-BMS-2020-092364

PATIENT
  Sex: Male

DRUGS (2)
  1. OPDIVO [Suspect]
     Active Substance: NIVOLUMAB
     Indication: TRANSITIONAL CELL CARCINOMA
     Dosage: 280 MILLIGRAM, Q3WK
     Route: 042
     Dates: start: 20200923, end: 20201102
  2. YERVOY [Suspect]
     Active Substance: IPILIMUMAB
     Indication: TRANSITIONAL CELL CARCINOMA
     Dosage: 90 MILLIGRAM, Q3WK
     Route: 042
     Dates: start: 20200923, end: 20201102

REACTIONS (2)
  - Intentional product use issue [Unknown]
  - Malignant neoplasm progression [Unknown]
